FAERS Safety Report 8198693-9 (Version None)
Quarter: 2012Q1

REPORT INFORMATION
  Report Type: 
  Country: None (occurrence: None)
  Receive Date: 20120309
  Receipt Date: 20120124
  Transmission Date: 20120608
  Serious: No
  Sender: FDA-Public Use
  Company Number: US-AMGEN-USASP2012005003

PATIENT
  Age: 61 Year
  Sex: Female

DRUGS (11)
  1. PROGESTERONE [Concomitant]
     Dosage: UNK
  2. FISH OIL [Concomitant]
     Dosage: UNK
  3. CALCIUM [Concomitant]
     Dosage: UNK
  4. TORADOL [Concomitant]
     Dosage: UNK
  5. EVAMIST [Concomitant]
     Dosage: UNK
  6. VITAMIN D [Concomitant]
     Dosage: UNK
  7. VITAMIN B6 [Concomitant]
     Dosage: UNK
  8. ZOLOFT [Concomitant]
  9. LORTAB [Concomitant]
     Dosage: UNK
  10. PROLIA [Suspect]
     Indication: OSTEOPOROSIS POSTMENOPAUSAL
     Dosage: 60 MG, Q6MO
     Dates: start: 20110721
  11. NIACIN [Concomitant]
     Dosage: UNK

REACTIONS (3)
  - ARTHRALGIA [None]
  - MUSCULOSKELETAL PAIN [None]
  - BONE PAIN [None]
